FAERS Safety Report 9192560 (Version 2)
Quarter: 2013Q2

REPORT INFORMATION
  Report Type: Spontaneous
  Country: FR (occurrence: FR)
  Receive Date: 20130327
  Receipt Date: 20130509
  Transmission Date: 20140414
  Serious: Yes (Death)
  Sender: FDA-Public Use
  Company Number: FR-SANOFI-AVENTIS-2013SA029179

PATIENT
  Age: 81 Year
  Sex: Male

DRUGS (5)
  1. JEVTANA [Suspect]
     Indication: PROSTATE CANCER METASTATIC
     Route: 042
     Dates: start: 20130221, end: 20130221
  2. NEULASTA [Concomitant]
     Indication: PROPHYLAXIS
     Dates: start: 20130222, end: 20130222
  3. RAMIPRIL [Concomitant]
     Indication: HYPERTENSION
     Route: 048
  4. ALLOPURINOL [Concomitant]
     Route: 048
  5. LORATADINE [Concomitant]
     Route: 048

REACTIONS (4)
  - Febrile bone marrow aplasia [Fatal]
  - Pyrexia [Fatal]
  - Septic shock [Fatal]
  - Disseminated intravascular coagulation [Fatal]
